FAERS Safety Report 18279440 (Version 3)
Quarter: 2020Q4

REPORT INFORMATION
  Report Type: Spontaneous
  Country: US (occurrence: US)
  Receive Date: 20200917
  Receipt Date: 20201009
  Transmission Date: 20210113
  Serious: Yes (Hospitalization)
  Sender: FDA-Public Use
  Company Number: US-TEVA-2020-US-1827425

PATIENT
  Age: 16 Year
  Sex: Female

DRUGS (10)
  1. DEXTRORPHAN [Interacting]
     Active Substance: DEXTRORPHAN
     Indication: PRODUCT USED FOR UNKNOWN INDICATION
     Route: 065
  2. MELATONIN [Interacting]
     Active Substance: MELATONIN
     Indication: OVERDOSE
     Dosage: INGESTED TWENTY 9MG MELATONIN TABLETS (TOTAL 180MG)
     Route: 048
  3. DIPHENHYDRAMINE. [Interacting]
     Active Substance: DIPHENHYDRAMINE
     Indication: PRODUCT USED FOR UNKNOWN INDICATION
     Route: 065
  4. METHYLPHENIDATE. [Interacting]
     Active Substance: METHYLPHENIDATE
     Indication: ATTENTION DEFICIT HYPERACTIVITY DISORDER
     Dosage: INGESTED TWICE HER PRESCRIBED DAILY DOSE OF METHYLPHENIDATE EXTENDED-RELEASE (72MG TOTAL)
     Route: 048
  5. CETIRIZINE [Suspect]
     Active Substance: CETIRIZINE HYDROCHLORIDE
     Indication: PRODUCT USED FOR UNKNOWN INDICATION
     Route: 065
  6. HYDROXYZINE [Interacting]
     Active Substance: HYDROXYZINE HYDROCHLORIDE
     Indication: ANXIETY
     Route: 048
  7. FLUOXETINE [Interacting]
     Active Substance: FLUOXETINE HYDROCHLORIDE
     Indication: DEPRESSION
     Route: 048
  8. GUANFACINE. [Interacting]
     Active Substance: GUANFACINE
     Indication: ATTENTION DEFICIT HYPERACTIVITY DISORDER
     Dosage: INGESTED TWICE HER PRESCRIBED DAILY DOSE OF GUANFACINE IMMEDIATE-RELEASE (4 MG TOTAL)
     Route: 048
  9. TRIMETHOPRIM. [Interacting]
     Active Substance: TRIMETHOPRIM
     Indication: PRODUCT USED FOR UNKNOWN INDICATION
     Route: 065
  10. DEXTROMETHORPHAN [Interacting]
     Active Substance: DEXTROMETHORPHAN
     Indication: PRODUCT USED FOR UNKNOWN INDICATION
     Route: 065

REACTIONS (4)
  - Drug interaction [Unknown]
  - Intentional product misuse [Unknown]
  - Orthostatic hypotension [Recovered/Resolved]
  - Overdose [Unknown]
